FAERS Safety Report 25539128 (Version 1)
Quarter: 2025Q3

REPORT INFORMATION
  Report Type: Spontaneous
  Country: US (occurrence: None)
  Receive Date: 20250709
  Receipt Date: 20250709
  Transmission Date: 20251020
  Serious: Yes (Other)
  Sender: FDA-CTU
  Company Number: None

PATIENT
  Age: 77 Year
  Sex: Male
  Weight: 70.2 kg

DRUGS (1)
  1. TRULICITY [Suspect]
     Active Substance: DULAGLUTIDE
     Dosage: OTHER FREQUENCY : ONCE A WEEK;?
     Route: 058
     Dates: start: 20250527, end: 20250705

REACTIONS (11)
  - Oropharyngeal pain [None]
  - Abdominal pain upper [None]
  - Vomiting [None]
  - White blood cell count increased [None]
  - Neutrophil percentage increased [None]
  - Lipase increased [None]
  - Blood creatinine increased [None]
  - Blood glucose increased [None]
  - Glycosuria [None]
  - Pancreatitis acute [None]
  - Acute kidney injury [None]

NARRATIVE: CASE EVENT DATE: 20250626
